FAERS Safety Report 10047201 (Version 2)
Quarter: 2014Q1

REPORT INFORMATION
  Report Type: Spontaneous
  Country: US (occurrence: US)
  Receive Date: 20140331
  Receipt Date: 20140331
  Transmission Date: 20141002
  Serious: No
  Sender: FDA-Public Use
  Company Number: US-MYLANLABS-2013S1019126

PATIENT
  Age: 70 Year
  Sex: Male
  Weight: 191.87 kg

DRUGS (9)
  1. FENTANYL TRANSDERMAL SYSTEM [Suspect]
     Indication: PAIN
     Dosage: CHANGE PATCH EVERY 72 HOURS.
     Route: 062
     Dates: start: 201207
  2. FENTANYL TRANSDERMAL SYSTEM [Suspect]
     Indication: INTERVERTEBRAL DISC DEGENERATION
     Dosage: CHANGE PATCH EVERY 72 HOURS.
     Route: 062
     Dates: start: 201207
  3. FENTANYL TRANSDERMAL SYSTEM [Suspect]
     Indication: OSTEOARTHRITIS
     Dosage: CHANGE PATCH EVERY 72 HOURS.
     Route: 062
     Dates: start: 201207
  4. LYRICA [Concomitant]
  5. LISINOPRIL [Concomitant]
  6. CELEBREX [Concomitant]
  7. CARVEDILOL [Concomitant]
  8. HYDROMORPHONE HCL [Concomitant]
     Dosage: DOSE UNIT:4
  9. OXYCODONE AND ACETAMINOPHEN [Concomitant]
     Dosage: 7.5MG/325MG

REACTIONS (4)
  - Drug effect decreased [Recovered/Resolved]
  - Pain [Recovered/Resolved]
  - Application site erythema [Recovered/Resolved]
  - Wrong technique in drug usage process [Recovered/Resolved]
